FAERS Safety Report 4432944-9 (Version None)
Quarter: 2004Q3

REPORT INFORMATION
  Report Type: 
  Country: None (occurrence: None)
  Receive Date: 20040823
  Receipt Date: 20040810
  Transmission Date: 20050211
  Serious: Yes (Other)
  Sender: FDA-Public Use
  Company Number: 2004227820DE

PATIENT
  Age: 61 Year
  Sex: Male

DRUGS (6)
  1. CAMPTOSAR [Suspect]
     Dosage: 170 MG, CYCLE 10
     Dates: start: 20040802, end: 20040802
  2. ARANESP [Concomitant]
  3. FOLATE SODIUM (FOLATE SODIUM) [Concomitant]
  4. MAGNESIUM [Concomitant]
  5. NAVOBAN (TROPISETRON HYDROCHLORIDE) [Concomitant]
  6. METOCLOPRAMIDE [Concomitant]

REACTIONS (5)
  - BRONCHOSPASM [None]
  - CHILLS [None]
  - HEART RATE INCREASED [None]
  - HYPERSENSITIVITY [None]
  - HYPOTENSION [None]
